FAERS Safety Report 5818332-9 (Version None)
Quarter: 2008Q3

REPORT INFORMATION
  Report Type: 
  Country: None (occurrence: None)
  Receive Date: 20080722
  Receipt Date: 20080710
  Transmission Date: 20090109
  Serious: Yes (Other)
  Sender: FDA-Public Use
  Company Number: US-PFIZER INC-2008058050

PATIENT
  Sex: Female
  Weight: 43.1 kg

DRUGS (4)
  1. LYRICA [Suspect]
     Indication: FIBROMYALGIA
     Dosage: DAILY DOSE:150MG
  2. ALL OTHER THERAPEUTIC PRODUCTS [Concomitant]
  3. MONTELUKAST SODIUM [Concomitant]
  4. POTASSIUM CHLORIDE [Concomitant]

REACTIONS (8)
  - BLISTER [None]
  - DISSOCIATION [None]
  - DISTURBANCE IN ATTENTION [None]
  - DIZZINESS [None]
  - DRY MOUTH [None]
  - FEELING DRUNK [None]
  - IMPAIRED DRIVING ABILITY [None]
  - SOCIAL FEAR [None]
